FAERS Safety Report 11796251 (Version 1)
Quarter: 2015Q4

REPORT INFORMATION
  Report Type: Spontaneous
  Country: US (occurrence: None)
  Receive Date: 20151202
  Receipt Date: 20151202
  Transmission Date: 20160305
  Serious: Yes (Hospitalization)
  Sender: FDA-Public Use
  Company Number: None

PATIENT
  Age: 52 Year
  Sex: Female
  Weight: 59.1 kg

DRUGS (1)
  1. INSULIN [Suspect]
     Active Substance: INSULIN NOS
     Indication: TYPE 1 DIABETES MELLITUS
     Route: 058
     Dates: start: 20050729, end: 20151130

REACTIONS (3)
  - Confusional state [None]
  - Hypoglycaemia [None]
  - Mental status changes [None]

NARRATIVE: CASE EVENT DATE: 20151130
